FAERS Safety Report 10426085 (Version 3)
Quarter: 2014Q4

REPORT INFORMATION
  Report Type: Report from Study
  Country: DE (occurrence: DE)
  Receive Date: 20140903
  Receipt Date: 20141112
  Transmission Date: 20150528
  Serious: Yes (Other)
  Sender: FDA-Public Use
  Company Number: DE-ROCHE-1317412

PATIENT
  Sex: Female

DRUGS (4)
  1. ZELBORAF [Suspect]
     Active Substance: VEMURAFENIB
     Indication: PRODUCT USED FOR UNKNOWN INDICATION
     Route: 065
  2. ZELBORAF [Suspect]
     Active Substance: VEMURAFENIB
     Route: 065
     Dates: start: 201311
  3. ZELBORAF [Suspect]
     Active Substance: VEMURAFENIB
     Route: 065
  4. ZELBORAF [Suspect]
     Active Substance: VEMURAFENIB
     Route: 065

REACTIONS (12)
  - Blood bilirubin increased [Unknown]
  - Drug reaction with eosinophilia and systemic symptoms [Unknown]
  - Aspartate aminotransferase increased [Unknown]
  - Malignant neoplasm progression [Unknown]
  - Swelling face [Unknown]
  - Eosinophilia [Recovering/Resolving]
  - Blood creatinine increased [Unknown]
  - Skin reaction [Recovered/Resolved]
  - Alopecia [Not Recovered/Not Resolved]
  - Flushing [Unknown]
  - Photosensitivity reaction [Not Recovered/Not Resolved]
  - Alanine aminotransferase increased [Unknown]
